FAERS Safety Report 19182714 (Version 2)
Quarter: 2021Q2

REPORT INFORMATION
  Report Type: Spontaneous
  Country: JP (occurrence: JP)
  Receive Date: 20210426
  Receipt Date: 20210524
  Transmission Date: 20210717
  Serious: Yes (Hospitalization, Other)
  Sender: FDA-Public Use
  Company Number: JP-SEATTLE GENETICS-2021SGN01843

PATIENT
  Age: 69 Year
  Sex: Male
  Weight: 48 kg

DRUGS (4)
  1. ADCETRIS [Suspect]
     Active Substance: BRENTUXIMAB VEDOTIN
     Indication: HODGKIN^S DISEASE
     Dosage: 57 MILLIGRAM
     Route: 042
     Dates: start: 20201008
  2. DOXORUBICIN HYDROCHLORIDE. [Suspect]
     Active Substance: DOXORUBICIN HYDROCHLORIDE
     Indication: HODGKIN^S DISEASE
     Dosage: 37 MILLIGRAM, Q2WEEKS
     Route: 042
     Dates: start: 20201008
  3. EXAL                               /00115802/ [Suspect]
     Active Substance: VINBLASTINE SULFATE
     Indication: HODGKIN^S DISEASE
     Dosage: 9 MILLIGRAM, Q2WEEKS
     Route: 042
     Dates: start: 20201008
  4. DACARBAZINE. [Suspect]
     Active Substance: DACARBAZINE
     Indication: HODGKIN^S DISEASE
     Dosage: 370 MILLIGRAM, Q2WEEKS
     Route: 042
     Dates: start: 20201008

REACTIONS (8)
  - Neutropenia [Recovered/Resolved]
  - Neutrophil count decreased [Unknown]
  - Myelosuppression [Recovered/Resolved]
  - Neutropenia [Recovered/Resolved]
  - Febrile neutropenia [Recovered/Resolved]
  - Neutrophil count decreased [Recovered/Resolved]
  - Neutropenia [Recovered/Resolved]
  - Platelet count decreased [Recovered/Resolved]

NARRATIVE: CASE EVENT DATE: 202010
